FAERS Safety Report 8305077-9 (Version None)
Quarter: 2012Q2

REPORT INFORMATION
  Report Type: 
  Country: None (occurrence: None)
  Receive Date: 20120413
  Receipt Date: 20120328
  Transmission Date: 20120825
  Serious: Yes (Other)
  Sender: FDA-Public Use
  Company Number: 2011027956

PATIENT
  Age: 65 Year
  Sex: Female
  Weight: 65.7716 kg

DRUGS (31)
  1. TEKTURNA [Concomitant]
  2. AMLODIPINE [Concomitant]
  3. PEPCID [Concomitant]
  4. CHONDROITIN (CHONDROITIN) [Concomitant]
  5. CIPRO [Concomitant]
  6. HIZENTRA [Suspect]
  7. ASPIRIN [Concomitant]
  8. MULTIVITAMIN (ACCOMIN MULTIVITAMIN) [Concomitant]
  9. CLONAZEPAM [Concomitant]
  10. HIZENTRA [Suspect]
     Indication: IMMUNODEFICIENCY
     Dosage: SEE IMAGE
     Route: 058
     Dates: start: 20110316
  11. HIZENTRA [Suspect]
     Indication: IMMUNODEFICIENCY
     Dosage: SEE IMAGE
     Route: 058
     Dates: start: 20110316
  12. HIZENTRA [Suspect]
     Indication: IMMUNODEFICIENCY
     Dosage: SEE IMAGE
     Route: 058
     Dates: start: 20110316
  13. HIZENTRA [Suspect]
     Indication: IMMUNODEFICIENCY
     Dosage: SEE IMAGE
     Route: 058
     Dates: start: 20110316
  14. HIZENTRA [Suspect]
     Indication: IMMUNODEFICIENCY
     Dosage: SEE IMAGE
     Route: 058
     Dates: start: 20110316
  15. PRO AIR HFA (PROCATEROL HYDROCHLORIDE) [Concomitant]
  16. BENICAR HCT [Concomitant]
  17. VITAMIN D [Concomitant]
  18. HIZENTRA [Suspect]
  19. HIZENTRA [Suspect]
  20. CALCIUN +D (CALCIUM D3) [Concomitant]
  21. MUCINEX [Concomitant]
  22. HIZENTRA [Suspect]
  23. PRAVASTATIN [Concomitant]
  24. FOSAMAX (ALDENDRONATE SODIUM) [Concomitant]
  25. XANAX [Concomitant]
  26. IMITREX [Concomitant]
  27. LORATADINE [Concomitant]
  28. FISH OIL (FISH OIL) [Concomitant]
  29. HIZENTRA [Suspect]
  30. SYNTHROID [Concomitant]
  31. AMOXICILLIN [Concomitant]

REACTIONS (9)
  - INFLUENZA LIKE ILLNESS [None]
  - URINARY TRACT INFECTION [None]
  - FATIGUE [None]
  - INFUSION SITE SWELLING [None]
  - CYSTITIS [None]
  - INFUSION SITE MASS [None]
  - PAIN [None]
  - INFUSION SITE EXTRAVASATION [None]
  - INFUSION SITE ERYTHEMA [None]
